FAERS Safety Report 18232735 (Version 1)
Quarter: 2020Q3

REPORT INFORMATION
  Report Type: Spontaneous
  Country: FR (occurrence: FR)
  Receive Date: 20200904
  Receipt Date: 20200904
  Transmission Date: 20201103
  Serious: Yes (Other)
  Sender: FDA-Public Use
  Company Number: FR-SA-2020SA238069

PATIENT

DRUGS (2)
  1. KEVZARA [Suspect]
     Active Substance: SARILUMAB
     Indication: PRODUCT USE IN UNAPPROVED INDICATION
  2. KEVZARA [Suspect]
     Active Substance: SARILUMAB
     Indication: COVID-19 TREATMENT
     Dosage: 1 DF, QOD
     Route: 042
     Dates: start: 20200404, end: 20200406

REACTIONS (3)
  - Off label use [Unknown]
  - Eosinophilia [Not Recovered/Not Resolved]
  - Hepatitis [Recovered/Resolved]

NARRATIVE: CASE EVENT DATE: 202004
